FAERS Safety Report 9420139 (Version 1)
Quarter: 2013Q3

REPORT INFORMATION
  Report Type: Spontaneous
  Country: US (occurrence: US)
  Receive Date: 20130725
  Receipt Date: 20130725
  Transmission Date: 20140515
  Serious: Yes (Other)
  Sender: FDA-Public Use
  Company Number: US-TEVA-421085USA

PATIENT
  Age: 67 Year
  Sex: Male

DRUGS (4)
  1. IFOSFAMIDE [Suspect]
     Indication: LIPOSARCOMA METASTATIC
     Dosage: 1.5 G/M2 Q3W DURING CYCLE 1
     Route: 065
  2. IFOSFAMIDE [Suspect]
     Indication: LIPOSARCOMA METASTATIC
     Dosage: 1.8 G/M2 Q3W DURING CYCLE 2
     Route: 065
  3. FUROSEMIDE [Concomitant]
     Dosage: 200MG OVER 1H
     Route: 042
  4. MESNA [Concomitant]
     Dosage: 1/3 OF IFOSFAMIDE DOSE EVERY 4H
     Route: 042

REACTIONS (1)
  - Cellulitis [Unknown]
